FAERS Safety Report 16268828 (Version 2)
Quarter: 2019Q2

REPORT INFORMATION
  Report Type: Spontaneous
  Country: JP (occurrence: JP)
  Receive Date: 20190503
  Receipt Date: 20190527
  Transmission Date: 20190711
  Serious: Yes (Hospitalization, Other)
  Sender: FDA-Public Use
  Company Number: JP-BRISTOL-MYERS SQUIBB COMPANY-BMS-2019-029566

PATIENT
  Age: 56 Year
  Sex: Male
  Weight: 91 kg

DRUGS (6)
  1. OXYCODONE [Concomitant]
     Active Substance: OXYCODONE
     Indication: ANTIINFLAMMATORY THERAPY
     Dosage: 12 MILLIGRAM, Q12H
     Route: 048
     Dates: start: 20181002
  2. OXYCODONE [Concomitant]
     Active Substance: OXYCODONE
     Indication: ANALGESIC THERAPY
     Route: 065
  3. OPDIVO [Suspect]
     Active Substance: NIVOLUMAB
     Indication: PLEURAL MESOTHELIOMA MALIGNANT
     Dosage: 240 MILLIGRAM PER DAY
     Route: 041
     Dates: start: 20180919, end: 20190213
  4. LOXOPROFEN [Concomitant]
     Active Substance: LOXOPROFEN
     Indication: ANALGESIC THERAPY
     Route: 065
  5. LOXOPROFEN [Concomitant]
     Active Substance: LOXOPROFEN
     Indication: ANTIINFLAMMATORY THERAPY
     Dosage: 60 MILLIGRAM, Q8H
     Route: 048
     Dates: start: 20181002
  6. NEXIUM [Concomitant]
     Active Substance: ESOMEPRAZOLE MAGNESIUM
     Indication: GASTROOESOPHAGEAL REFLUX DISEASE
     Dosage: 20 MILLIGRAM, QD
     Route: 048
     Dates: start: 20171129

REACTIONS (5)
  - Constipation [Unknown]
  - Product use in unapproved indication [Unknown]
  - Hypertension [Unknown]
  - Interstitial lung disease [Recovering/Resolving]
  - Arrhythmia [Unknown]

NARRATIVE: CASE EVENT DATE: 20181226
